FAERS Safety Report 8806681 (Version 1)
Quarter: 2012Q4

REPORT INFORMATION
  Report Type: 
  Country: FR (occurrence: FR)
  Receive Date: 20120925
  Receipt Date: 20120925
  Transmission Date: 20130627
  Serious: Yes (Other)
  Sender: FDA-Public Use
  Company Number: PHHY2012FR082479

PATIENT
  Sex: Male

DRUGS (1)
  1. NEORAL [Suspect]
     Dosage: 125 mg, BID
     Dates: start: 201206

REACTIONS (4)
  - Thermal burn [Unknown]
  - Skin exfoliation [Unknown]
  - Pain [Unknown]
  - Skin tightness [None]
